FAERS Safety Report 18680844 (Version 1)
Quarter: 2020Q4

REPORT INFORMATION
  Report Type: Spontaneous
  Country: US (occurrence: US)
  Receive Date: 20201229
  Receipt Date: 20201229
  Transmission Date: 20210114
  Serious: No
  Sender: FDA-Public Use
  Company Number: US-CLOVIS ONCOLOGY-CLO-2020-000341

PATIENT
  Age: 68 Year
  Sex: Female

DRUGS (7)
  1. RUBRACA [Suspect]
     Active Substance: RUCAPARIB CAMSYLATE
     Dosage: 600 MG, BID
     Route: 048
     Dates: start: 20200130
  2. RUBRACA [Suspect]
     Active Substance: RUCAPARIB CAMSYLATE
     Dosage: 600 MG, BID
     Route: 048
     Dates: start: 20200130
  3. RUBRACA [Suspect]
     Active Substance: RUCAPARIB CAMSYLATE
     Dosage: UNK
  4. RUBRACA [Suspect]
     Active Substance: RUCAPARIB CAMSYLATE
     Indication: OVARIAN CANCER
     Dosage: 600 MG, BID
     Route: 048
     Dates: start: 20200130, end: 2020
  5. COMPAZINE                          /00013302/ [Suspect]
     Active Substance: PROCHLORPERAZINE EDISYLATE
     Indication: PRODUCT USED FOR UNKNOWN INDICATION
  6. RUBRACA [Suspect]
     Active Substance: RUCAPARIB CAMSYLATE
     Dosage: 600 MG, BID
     Route: 048
     Dates: start: 20200130, end: 2020
  7. RUBRACA [Suspect]
     Active Substance: RUCAPARIB CAMSYLATE
     Dosage: 600 MG, BID
     Route: 048
     Dates: start: 20200130

REACTIONS (25)
  - Liver function test increased [Unknown]
  - Abdominal distension [Unknown]
  - Muscular weakness [Unknown]
  - Taste disorder [Unknown]
  - Dry skin [Not Recovered/Not Resolved]
  - Tinnitus [Unknown]
  - Dehydration [Unknown]
  - Nausea [Not Recovered/Not Resolved]
  - Fatigue [Not Recovered/Not Resolved]
  - Discomfort [Not Recovered/Not Resolved]
  - Heart rate increased [Unknown]
  - Chest discomfort [Not Recovered/Not Resolved]
  - Drug intolerance [Not Recovered/Not Resolved]
  - Gingival disorder [Unknown]
  - Dizziness [Not Recovered/Not Resolved]
  - Headache [Unknown]
  - Adverse event [Not Recovered/Not Resolved]
  - Feeling abnormal [Not Recovered/Not Resolved]
  - Weight decreased [Unknown]
  - Vomiting [Not Recovered/Not Resolved]
  - Drug intolerance [Unknown]
  - Somnolence [Unknown]
  - Constipation [Not Recovered/Not Resolved]
  - Sunburn [Unknown]
  - Platelet count decreased [Unknown]

NARRATIVE: CASE EVENT DATE: 2020
